FAERS Safety Report 20560218 (Version 1)
Quarter: 2022Q1

REPORT INFORMATION
  Report Type: Spontaneous
  Country: FR (occurrence: FR)
  Receive Date: 20220307
  Receipt Date: 20220307
  Transmission Date: 20220423
  Serious: Yes (Hospitalization)
  Sender: FDA-Public Use
  Company Number: None

PATIENT
  Age: 74 Year
  Sex: Female
  Weight: 44 kg

DRUGS (4)
  1. DEXAMETHASONE [Suspect]
     Active Substance: DEXAMETHASONE
     Indication: Prophylaxis of nausea and vomiting
     Dosage: 8 MILLIGRAM
     Route: 041
     Dates: start: 20210910, end: 20211126
  2. POLARAMINE [Suspect]
     Active Substance: DEXCHLORPHENIRAMINE MALEATE
     Indication: Prophylaxis of nausea and vomiting
     Dosage: 5 MILLIGRAM
     Route: 041
     Dates: start: 20210910, end: 20211126
  3. HERCEPTIN [Suspect]
     Active Substance: TRASTUZUMAB
     Indication: Intraductal proliferative breast lesion
     Dosage: 600 MILLIGRAM
     Route: 058
     Dates: start: 20210910, end: 20211208
  4. PACLITAXEL [Suspect]
     Active Substance: PACLITAXEL
     Indication: Intraductal proliferative breast lesion
     Dosage: 116 MILLIGRAM
     Route: 041
     Dates: start: 20210910, end: 20211126

REACTIONS (1)
  - Interstitial lung disease [Recovering/Resolving]

NARRATIVE: CASE EVENT DATE: 20211124
